FAERS Safety Report 5569899-X (Version None)
Quarter: 2007Q4

REPORT INFORMATION
  Report Type: 
  Country: None (occurrence: None)
  Receive Date: 20071217
  Receipt Date: 20071203
  Transmission Date: 20080405
  Serious: Yes (Other)
  Sender: FDA-Public Use
  Company Number: A-NJ2007-18570

PATIENT
  Age: 65 Year
  Sex: Female

DRUGS (18)
  1. TRACLEER [Suspect]
     Indication: PULMONARY HYPERTENSION
     Dosage: ORAL
     Route: 048
     Dates: start: 20060101
  2. LIPITOR [Suspect]
  3. LYRICA [Suspect]
  4. AMARYL [Concomitant]
  5. GLUCOPHAGE [Concomitant]
  6. QUINAPRIL HCL [Concomitant]
  7. ISOSORBIDE (ISOSORBIDE) [Concomitant]
  8. VERAPAMIL [Concomitant]
  9. SYNTHROID [Concomitant]
  10. GABAPENTIN [Concomitant]
  11. FEXOFENADINE HCL [Concomitant]
  12. FOLIC ACID [Concomitant]
  13. ELMIRON [Concomitant]
  14. AMITRIPTYLINE HCL [Concomitant]
  15. ASPIRIN [Concomitant]
  16. PREDNISONE [Concomitant]
  17. SPIRIVA [Concomitant]
  18. RHINOCORT [Concomitant]

REACTIONS (9)
  - ALANINE AMINOTRANSFERASE INCREASED [None]
  - ASPARTATE AMINOTRANSFERASE INCREASED [None]
  - BLOOD ALBUMIN DECREASED [None]
  - BLOOD ALKALINE PHOSPHATASE INCREASED [None]
  - BLOOD BILIRUBIN INCREASED [None]
  - FATIGUE [None]
  - JAUNDICE [None]
  - MALAISE [None]
  - MYALGIA [None]
